FAERS Safety Report 4385140-8 (Version None)
Quarter: 2004Q2

REPORT INFORMATION
  Report Type: 
  Country: None (occurrence: None)
  Receive Date: 20040624
  Receipt Date: 20040624
  Transmission Date: 20050107
  Serious: Yes (Hospitalization)
  Sender: FDA-Public Use
  Company Number: None

PATIENT
  Sex: Male
  Weight: 79.1 kg

DRUGS (14)
  1. PIPERACILLIN/ TAZOBACTAM [Suspect]
     Indication: PYREXIA
     Dosage: 3.375 GRAMS IV Q8H
     Route: 042
     Dates: start: 20040223, end: 20040226
  2. PREDNISONE [Concomitant]
  3. CHLORAMBUCIL [Concomitant]
  4. LISINOPRIL [Concomitant]
  5. DILTIAZEM [Concomitant]
  6. ASPIRIN [Concomitant]
  7. GLYBURIDE [Concomitant]
  8. PIOGLITAZONE HCL [Concomitant]
  9. INSULIN [Concomitant]
  10. SIMVASTATIN [Concomitant]
  11. EPOGEN [Concomitant]
  12. IRON SUPPLEMENTS [Concomitant]
  13. DOCUSATE [Concomitant]
  14. VIAGRA [Concomitant]

REACTIONS (2)
  - DIALYSIS [None]
  - NEPHRITIS INTERSTITIAL [None]
